FAERS Safety Report 25667843 (Version 3)
Quarter: 2025Q4

REPORT INFORMATION
  Report Type: Spontaneous
  Country: JP (occurrence: JP)
  Receive Date: 20250812
  Receipt Date: 20251009
  Transmission Date: 20260118
  Serious: No
  Sender: TAKEDA
  Company Number: JP-TAKEDA-2025TJP006313

PATIENT
  Age: 59 Year
  Sex: Male
  Weight: 66.7 kg

DRUGS (13)
  1. ENTYVIO [Suspect]
     Active Substance: VEDOLIZUMAB
     Indication: Colitis ulcerative
     Dosage: UNK
     Dates: start: 20250605, end: 20250605
  2. LIALDA [Concomitant]
     Active Substance: MESALAMINE
     Indication: Colitis ulcerative
     Dosage: 4800 MILLIGRAM, QD
     Dates: start: 20250409, end: 20250806
  3. LIALDA [Concomitant]
     Active Substance: MESALAMINE
     Dosage: UNK
  4. PREDONINE [Concomitant]
     Active Substance: PREDNISOLONE
     Indication: Colitis ulcerative
     Dosage: 20 MILLIGRAM, BID
     Dates: start: 20250414
  5. PREDONINE [Concomitant]
     Active Substance: PREDNISOLONE
     Dosage: 30 MILLIGRAM
  6. PREDONINE [Concomitant]
     Active Substance: PREDNISOLONE
     Dosage: 20 MILLIGRAM
  7. PREDONINE [Concomitant]
     Active Substance: PREDNISOLONE
     Dosage: 10 MILLIGRAM
  8. PREDONINE [Concomitant]
     Active Substance: PREDNISOLONE
     Dosage: 5 MILLIGRAM
  9. PREDONINE [Concomitant]
     Active Substance: PREDNISOLONE
     Dosage: 2.5 MILLIGRAM
     Dates: start: 20250517, end: 20250522
  10. PREDONINE [Concomitant]
     Active Substance: PREDNISOLONE
     Dosage: UNK
  11. IMURAN [Concomitant]
     Active Substance: AZATHIOPRINE
     Indication: Colitis ulcerative
     Dosage: 25 MILLIGRAM, QD
     Dates: start: 20250509
  12. IMURAN [Concomitant]
     Active Substance: AZATHIOPRINE
     Dosage: 50 MILLIGRAM
     Dates: start: 20250520, end: 20250806
  13. IMURAN [Concomitant]
     Active Substance: AZATHIOPRINE
     Dosage: UNK

REACTIONS (6)
  - Hepatic function abnormal [Recovered/Resolved]
  - Eosinophil count increased [Recovered/Resolved]
  - Oedema peripheral [Recovering/Resolving]
  - Face oedema [Recovering/Resolving]
  - Dry skin [Recovering/Resolving]
  - Skin exfoliation [Recovering/Resolving]

NARRATIVE: CASE EVENT DATE: 20250618
